FAERS Safety Report 5666795-4 (Version None)
Quarter: 2008Q1

REPORT INFORMATION
  Report Type: 
  Country: None (occurrence: None)
  Receive Date: 20080315
  Receipt Date: 20071221
  Transmission Date: 20080703
  Serious: No
  Sender: FDA-Public Use
  Company Number: US-ABBOTT-08P-163-0432099-00

PATIENT
  Sex: Female
  Weight: 48.578 kg

DRUGS (4)
  1. HUMIRA [Suspect]
     Indication: CROHN'S DISEASE
     Route: 058
     Dates: start: 20071207, end: 20071207
  2. HUMIRA [Suspect]
     Route: 058
     Dates: start: 20071221, end: 20071221
  3. HUMIRA [Suspect]
     Route: 058
  4. PREDNISONE [Concomitant]
     Indication: DRUG USE FOR UNKNOWN INDICATION
     Route: 048

REACTIONS (11)
  - ANAEMIA [None]
  - BLOOD ALBUMIN DECREASED [None]
  - BLOOD CALCIUM DECREASED [None]
  - BLOOD POTASSIUM DECREASED [None]
  - CHILLS [None]
  - DIARRHOEA [None]
  - FATIGUE [None]
  - HEADACHE [None]
  - NAUSEA [None]
  - NIGHT SWEATS [None]
  - PAIN [None]
